FAERS Safety Report 9067461 (Version 1)
Quarter: 2013Q1

REPORT INFORMATION
  Report Type: Spontaneous
  Country: BR (occurrence: BR)
  Receive Date: 20130129
  Receipt Date: 20130129
  Transmission Date: 20140127
  Serious: Yes (Other)
  Sender: FDA-Public Use
  Company Number: PHHY2013BR008070

PATIENT
  Age: 64 None
  Sex: Female
  Weight: 75 kg

DRUGS (3)
  1. DIOVAN HCT [Suspect]
     Indication: HYPERTENSION
     Dosage: 1 DF (320/12.5MG) IN THE MORNING
     Dates: start: 2008
  2. DIOVAN HCT [Suspect]
     Dosage: 1 DF (160/12.5MG) ONCE DAILY
     Route: 048
     Dates: end: 20130125
  3. PANTOPRAZOLE [Concomitant]
     Indication: GASTROOESOPHAGEAL REFLUX DISEASE
     Dosage: 40 MG, AT NIGHT
     Route: 048

REACTIONS (3)
  - Diverticulitis [Not Recovered/Not Resolved]
  - Blood cholesterol increased [Recovering/Resolving]
  - Hypotension [Recovered/Resolved]
